FAERS Safety Report 24938017 (Version 1)
Quarter: 2025Q1

REPORT INFORMATION
  Report Type: Spontaneous
  Country: FR (occurrence: FR)
  Receive Date: 20250206
  Receipt Date: 20250206
  Transmission Date: 20250408
  Serious: Yes (Hospitalization)
  Sender: PFIZER
  Company Number: None

PATIENT
  Age: 82 Year
  Sex: Female
  Weight: 55.7 kg

DRUGS (8)
  1. SPIRONOLACTONE [Suspect]
     Active Substance: SPIRONOLACTONE
     Indication: Cardiac failure
     Dosage: 25 MG, 1X/DAY, LONG-TERM
     Route: 048
     Dates: end: 20240907
  2. RAMIPRIL [Suspect]
     Active Substance: RAMIPRIL
     Indication: Hypertensive heart disease
     Dosage: 5 MG, 1X/DAY LONG COURSE
     Route: 048
     Dates: end: 20240907
  3. SOTALOL HYDROCHLORIDE [Suspect]
     Active Substance: SOTALOL HYDROCHLORIDE
     Indication: Hypertensive heart disease
     Dosage: 160 MG, 1X/DAY, LONG-TERM
     Route: 048
     Dates: end: 20240908
  4. APIXABAN [Concomitant]
     Active Substance: APIXABAN
  5. BUMETANIDE [Concomitant]
     Active Substance: BUMETANIDE
  6. OXAZEPAM [Concomitant]
     Active Substance: OXAZEPAM
  7. FOLIC ACID [Concomitant]
     Active Substance: FOLIC ACID
  8. CHOLECALCIFEROL [Concomitant]
     Active Substance: CHOLECALCIFEROL

REACTIONS (2)
  - Acute kidney injury [Recovered/Resolved]
  - Sinus bradycardia [Recovered/Resolved]

NARRATIVE: CASE EVENT DATE: 20240907
